FAERS Safety Report 14983630 (Version 1)
Quarter: 2018Q2

REPORT INFORMATION
  Report Type: Spontaneous
  Country: DE (occurrence: DE)
  Receive Date: 20180607
  Receipt Date: 20180607
  Transmission Date: 20180711
  Serious: Yes (Hospitalization)
  Sender: FDA-Public Use
  Company Number: DE-PFIZER INC-2018227542

PATIENT
  Age: 87 Year
  Sex: Female

DRUGS (5)
  1. OPIPRAMOL [Interacting]
     Active Substance: OPIPRAMOL
     Dosage: UNK
  2. TAVOR (LORAZEPAM) [Suspect]
     Active Substance: LORAZEPAM
     Dosage: UNK
  3. FOSTER [Concomitant]
     Active Substance: BECLOMETHASONE\FORMOTEROL
     Dosage: UNK
  4. VOCADO [Concomitant]
     Active Substance: AMLODIPINE BESYLATE\OLMESARTAN MEDOXOMIL
     Dosage: UNK
  5. CARMEN [Concomitant]
     Active Substance: LERCANIDIPINE
     Dosage: UNK MG, UNK

REACTIONS (4)
  - Fall [Unknown]
  - Labelled drug-drug interaction medication error [Unknown]
  - Pain [Unknown]
  - Fracture [Unknown]
